FAERS Safety Report 13786459 (Version 1)
Quarter: 2017Q3

REPORT INFORMATION
  Report Type: Spontaneous
  Country: US (occurrence: US)
  Receive Date: 20170725
  Receipt Date: 20170725
  Transmission Date: 20171127
  Serious: Yes (Other)
  Sender: FDA-Public Use
  Company Number: None

PATIENT
  Age: 64 Year
  Sex: Female
  Weight: 81 kg

DRUGS (7)
  1. MEMANTINE HCL 5 MG [Suspect]
     Active Substance: MEMANTINE
     Indication: DEMENTIA
     Dosage: ?          QUANTITY:1 TABLET(S);?
     Route: 048
  2. ZETIA [Concomitant]
     Active Substance: EZETIMIBE
  3. DONEPEZIL. [Concomitant]
     Active Substance: DONEPEZIL
  4. CITALOPRAM [Concomitant]
     Active Substance: CITALOPRAM HYDROBROMIDE
  5. CENTRUM SILVER FOR WOMEN MULTI-VIT [Concomitant]
  6. LEVOTHYROXIN [Concomitant]
     Active Substance: LEVOTHYROXINE
  7. ATENOLOL. [Concomitant]
     Active Substance: ATENOLOL

REACTIONS (1)
  - Myoclonus [None]

NARRATIVE: CASE EVENT DATE: 20170718
